FAERS Safety Report 14908685 (Version 1)
Quarter: 2018Q2

REPORT INFORMATION
  Report Type: Spontaneous
  Country: PL (occurrence: PL)
  Receive Date: 20180517
  Receipt Date: 20180517
  Transmission Date: 20180711
  Serious: Yes (Other)
  Sender: FDA-Public Use
  Company Number: PL-SA-2018SA109505

PATIENT
  Age: 24 Year
  Sex: Male
  Weight: 83.5 kg

DRUGS (2)
  1. FABRAZYME [Suspect]
     Active Substance: AGALSIDASE BETA
     Indication: FABRY^S DISEASE
     Route: 041
     Dates: start: 20140224
  2. AMLODIPINE [Concomitant]
     Active Substance: AMLODIPINE BESYLATE
     Indication: HYPERTENSION
     Route: 065
     Dates: start: 2015

REACTIONS (4)
  - Aortic valve incompetence [Unknown]
  - Oedema peripheral [Unknown]
  - Mitral valve incompetence [Unknown]
  - Angiokeratoma [Unknown]
